FAERS Safety Report 6764587-6 (Version None)
Quarter: 2010Q2

REPORT INFORMATION
  Report Type: 
  Country: None (occurrence: None)
  Receive Date: 20100609
  Receipt Date: 20100503
  Transmission Date: 20101027
  Serious: No
  Sender: FDA-Public Use
  Company Number: 2010010731

PATIENT
  Age: 15 Month
  Sex: Female

DRUGS (1)
  1. CHILDREN'S ZYRTEC ALLERGY [Suspect]
     Indication: URTICARIA

REACTIONS (5)
  - OFF LABEL USE [None]
  - PRODUCT QUALITY ISSUE [None]
  - RASH [None]
  - SCRATCH [None]
  - WRONG DRUG ADMINISTERED [None]
